FAERS Safety Report 18093411 (Version 1)
Quarter: 2020Q3

REPORT INFORMATION
  Report Type: Spontaneous
  Country: US (occurrence: US)
  Receive Date: 20200730
  Receipt Date: 20200730
  Transmission Date: 20201103
  Serious: Yes (Other)
  Sender: FDA-Public Use
  Company Number: US-STRIDES ARCOLAB LIMITED-2020SP008549

PATIENT
  Age: 63 Year
  Sex: Female

DRUGS (9)
  1. LIDOCAINE. [Suspect]
     Active Substance: LIDOCAINE
     Indication: LOCAL ANAESTHESIA
     Dosage: 6 ML OF 50:50 MIXTURE OF 2 PERCENT XYLOCAINE AND 0.75 PERCENT BUPIVACAINE
  2. MIDAZOLAM. [Concomitant]
     Active Substance: MIDAZOLAM
     Dosage: 2 MILLIGRAM, UNK
     Route: 065
  3. FENTANYL. [Concomitant]
     Active Substance: FENTANYL
     Indication: PRODUCT USED FOR UNKNOWN INDICATION
     Dosage: 25 MCG
     Route: 065
  4. BUPIVACAINE. [Suspect]
     Active Substance: BUPIVACAINE
     Indication: LOCAL ANAESTHESIA
     Dosage: 6 ML OF 50:50 MIXTURE OF 2 PERCENT XYLOCAINE AND 0.75 PERCENT BUPIVACAINE
  5. KETAMINE [Concomitant]
     Active Substance: KETAMINE
     Indication: PRODUCT USED FOR UNKNOWN INDICATION
     Dosage: 10 MILLIGRAM, UNK
     Route: 065
  6. LIDOCAINE. [Suspect]
     Active Substance: LIDOCAINE
     Dosage: 1 ML OF 25 MG/ML CHLORPROMAZINE MIXED WITH 1 ML OF PRESERVATIVE?FREE 1 PERCENT LIDOCAINE WAS INJECTE
  7. CHLORPROMAZINE. [Suspect]
     Active Substance: CHLORPROMAZINE
     Indication: EYE PAIN
     Dosage: 1 ML OF 25 MG/ML CHLORPROMAZINE MIXED WITH 1 ML OF PRESERVATIVE?FREE 1 PERCENT LIDOCAINE WAS INJECTE
  8. MIDAZOLAM. [Concomitant]
     Active Substance: MIDAZOLAM
     Indication: ANXIETY
     Dosage: 2 MILLIGRAM, UNK
     Route: 065
  9. HYALURONIDASE [Concomitant]
     Active Substance: HYALURONIDASE
     Indication: PRODUCT USED FOR UNKNOWN INDICATION
     Dosage: 50 UNITS, UNK

REACTIONS (2)
  - Sedation [Recovered/Resolved]
  - Local anaesthetic systemic toxicity [Recovered/Resolved]
